FAERS Safety Report 20937429 (Version 1)
Quarter: 2022Q2

REPORT INFORMATION
  Report Type: Report from Study
  Country: US (occurrence: US)
  Receive Date: 20220609
  Receipt Date: 20220609
  Transmission Date: 20220721
  Serious: Yes (Disabling)
  Sender: FDA-Public Use
  Company Number: US-ROCHE-2952825

PATIENT
  Sex: Female

DRUGS (27)
  1. CLONAZEPAM [Suspect]
     Active Substance: CLONAZEPAM
     Indication: Ill-defined disorder
     Dosage: DOSE PROVIDED AS THREE 0.5 MG TABLETS AT NIGHT
     Route: 048
  2. OCREVUS [Suspect]
     Active Substance: OCRELIZUMAB
     Indication: Relapsing-remitting multiple sclerosis
     Dosage: 300 MG,ON DAY 1 AND 15 THEN 600 MG EVERY 6 MONTHS
     Route: 042
     Dates: start: 202003
  3. OCREVUS [Suspect]
     Active Substance: OCRELIZUMAB
     Indication: Relapsing-remitting multiple sclerosis
     Dosage: UNK
     Route: 042
     Dates: start: 202009
  4. OCREVUS [Suspect]
     Active Substance: OCRELIZUMAB
     Indication: Relapsing-remitting multiple sclerosis
     Dosage: UNK
     Route: 042
     Dates: start: 202103
  5. OCREVUS [Suspect]
     Active Substance: OCRELIZUMAB
     Indication: Relapsing-remitting multiple sclerosis
     Dosage: UNK
     Route: 042
     Dates: start: 20210908
  6. FASENRA [Concomitant]
     Active Substance: BENRALIZUMAB
     Indication: Asthma
     Dosage: INJECT 1 SYRINGE UNDER THE SKIN
     Route: 058
  7. GABAPENTIN [Concomitant]
     Active Substance: GABAPENTIN
     Indication: Pain
     Dosage: 300 MG
     Route: 048
  8. HYDROXYCHLOROQUINE [Concomitant]
     Active Substance: HYDROXYCHLOROQUINE
     Indication: COVID-19
     Dosage: UNK
     Route: 048
  9. SINGULAIR [Concomitant]
     Active Substance: MONTELUKAST SODIUM
     Dosage: UNK
     Route: 065
  10. SPIRIVA RESPIMAT [Concomitant]
     Active Substance: TIOTROPIUM BROMIDE
     Dosage: 1 PUFF DAILY ;ONGOING: YES
     Route: 055
  11. TRAZODONE [Concomitant]
     Active Substance: TRAZODONE HYDROCHLORIDE
     Indication: Insomnia
     Dosage: 300 MG, DAILY
     Route: 048
  12. ZINC [Concomitant]
     Active Substance: ZINC
     Dosage: UNKNOWN FREQUENCY BUT IS NOT DAILY ;ONGOING: YES
     Route: 048
  13. BACLOFEN [Concomitant]
     Active Substance: BACLOFEN
     Dosage: 10 MG, BID
     Route: 048
  14. BIOTIN [Concomitant]
     Active Substance: BIOTIN
     Dosage: UNK,5,000 UNITS DAILY ;ONGOING: YES
     Route: 048
  15. SYMBICORT [Concomitant]
     Active Substance: BUDESONIDE\FORMOTEROL FUMARATE DIHYDRATE
     Dosage: UNK, BID
     Route: 055
  16. NUCALA [Concomitant]
     Active Substance: MEPOLIZUMAB
     Dosage: UNK
     Route: 065
  17. PROAIR HFA [Concomitant]
     Active Substance: ALBUTEROL SULFATE
     Dosage: UNK
     Route: 065
  18. RANITIDINE [Concomitant]
     Active Substance: RANITIDINE
     Dosage: UNK
     Route: 065
  19. SUMATRIPTAN [Concomitant]
     Active Substance: SUMATRIPTAN
     Dosage: UNK
     Route: 065
  20. MONTELUKAST [Concomitant]
     Active Substance: MONTELUKAST SODIUM
     Dosage: UNK
     Route: 065
  21. FLUTICASONE [Concomitant]
     Active Substance: FLUTICASONE
     Dosage: UNK
     Route: 065
  22. ESTRADIOL [Concomitant]
     Active Substance: ESTRADIOL
     Dosage: UNK
     Route: 065
  23. DULERA [Concomitant]
     Active Substance: FORMOTEROL FUMARATE DIHYDRATE\MOMETASONE FUROATE
     Dosage: UNK
     Route: 065
  24. CHOLECALCIFEROL [Concomitant]
     Active Substance: CHOLECALCIFEROL
     Dosage: UNK
     Route: 065
  25. AMLODIPINE [Concomitant]
     Active Substance: AMLODIPINE BESYLATE
     Dosage: UNK
     Route: 065
  26. ASPIRIN [Concomitant]
     Active Substance: ASPIRIN
     Dosage: UNK
     Route: 065
  27. ACYCLOVIR [Concomitant]
     Active Substance: ACYCLOVIR
     Dosage: UNK
     Route: 065

REACTIONS (8)
  - Gait inability [Recovered/Resolved]
  - Weight decreased [Recovering/Resolving]
  - Chronic obstructive pulmonary disease [Unknown]
  - Alopecia [Recovered/Resolved]
  - Herpes virus infection [Not Recovered/Not Resolved]
  - Weight gain poor [Recovered/Resolved]
  - Anaemia [Not Recovered/Not Resolved]
  - Speech disorder [Not Recovered/Not Resolved]

NARRATIVE: CASE EVENT DATE: 20200101
